FAERS Safety Report 5232975-5 (Version None)
Quarter: 2007Q1

REPORT INFORMATION
  Report Type: 
  Country: None (occurrence: None)
  Receive Date: 20061204
  Receipt Date: 20061025
  Transmission Date: 20070707
  Serious: No
  Sender: FDA-Public Use
  Company Number: 2006-BP-11615BP

PATIENT
  Age: 82 Year
  Sex: Male
  Weight: 100.2 kg

DRUGS (12)
  1. SPIRIVA [Suspect]
     Indication: CHRONIC OBSTRUCTIVE PULMONARY DISEASE
     Dosage: 18 MCG (18 MCG,1 IN 1 D),IH
     Route: 055
     Dates: start: 20060201, end: 20060803
  2. SPIRIVA [Suspect]
  3. ALBUTEROL [Concomitant]
  4. FLOVENT HFA (FLUTICASONE PROPIONATE) [Concomitant]
  5. ADVAIR DISCUS (SERETIDE /01420901/) [Concomitant]
  6. PREDNISONE TAB [Concomitant]
  7. AUGMENTIN (AUGMENTIN /00756801/) [Concomitant]
  8. MONTELUKAST (MONTELUKAST) [Concomitant]
  9. THEOPHYLLINE [Concomitant]
  10. CLARITIN [Concomitant]
  11. COUGH COLD (ALL OTHER THERAPEUTIC PRODUCTS) [Concomitant]
  12. VITAMIN SUPPLEMENTS (RETINOL) [Concomitant]

REACTIONS (5)
  - EYE BURNS [None]
  - EYE PRURITUS [None]
  - HAEMATOSPERMIA [None]
  - RASH [None]
  - RED BLOOD CELLS SEMEN [None]
